FAERS Safety Report 7293527-9 (Version None)
Quarter: 2011Q1

REPORT INFORMATION
  Report Type: 
  Country: None (occurrence: None)
  Receive Date: 20110215
  Receipt Date: 20110207
  Transmission Date: 20110831
  Serious: Yes (Hospitalization)
  Sender: FDA-Public Use
  Company Number: US-BRISTOL-MYERS SQUIBB COMPANY-15177082

PATIENT
  Age: 55 Year
  Sex: Female
  Weight: 74 kg

DRUGS (15)
  1. LEVAQUIN [Concomitant]
     Indication: RESPIRATORY TRACT INFECTION
     Route: 048
     Dates: start: 20100517, end: 20100525
  2. CETUXIMAB [Suspect]
     Indication: NON-SMALL CELL LUNG CANCER
     Dosage: RECENT INF:15JUN2010 INT ON 22JUN10
     Route: 042
     Dates: start: 20100525, end: 20100615
  3. CARBOPLATIN [Suspect]
     Indication: NON-SMALL CELL LUNG CANCER
     Dosage: INT ON 22JUN10
     Route: 042
     Dates: start: 20100525, end: 20100615
  4. MAGIC MOUTHWASH [Concomitant]
     Indication: MUCOSAL INFLAMMATION
     Dosage: AS NEEDED
     Route: 048
     Dates: start: 20100525
  5. ATENOLOL [Concomitant]
     Indication: HYPERTENSION
     Dosage: STARTED PRIOR TO 2010
     Route: 048
  6. MORPHINE SULFATE [Concomitant]
     Indication: PAIN
     Route: 048
     Dates: start: 20100406
  7. EMLA [Concomitant]
     Indication: ANALGESIC THERAPY
     Dosage: 1DF= ONE APPLICATION
     Route: 061
     Dates: start: 20100525
  8. CITALOPRAM [Concomitant]
     Indication: ANXIETY
     Dosage: STARTED PRIOR TO 2010
     Route: 048
  9. OXYCODONE [Concomitant]
     Indication: PAIN
     Dosage: AS NEEDED
     Route: 048
     Dates: start: 20100422
  10. PACLITAXEL [Suspect]
     Indication: NON-SMALL CELL LUNG CANCER
     Dosage: RECENT INF:15JUN2010 INT ON 22JUN10
     Route: 042
     Dates: start: 20100525, end: 20100615
  11. PROCHLORPERAZINE [Concomitant]
     Indication: NAUSEA
     Dosage: AS NEEDED
     Route: 048
     Dates: start: 20100525
  12. PANTOPRAZOLE [Concomitant]
     Indication: GASTROOESOPHAGEAL REFLUX DISEASE
     Route: 048
     Dates: start: 20100422
  13. MEGACE [Concomitant]
     Indication: DECREASED APPETITE
     Route: 048
     Dates: start: 20100422
  14. CIPROFLOXACIN [Concomitant]
     Indication: RESPIRATORY TRACT INFECTION
     Route: 048
     Dates: start: 20100519, end: 20100526
  15. COMBIVENT [Concomitant]
     Indication: PULMONARY CONGESTION
     Dosage: 1DF=1 PUFF
     Route: 055
     Dates: start: 20100422

REACTIONS (2)
  - PANCYTOPENIA [None]
  - DRUG HYPERSENSITIVITY [None]
